FAERS Safety Report 14753301 (Version 1)
Quarter: 2018Q2

REPORT INFORMATION
  Report Type: Spontaneous
  Country: US (occurrence: US)
  Receive Date: 20180412
  Receipt Date: 20180412
  Transmission Date: 20180711
  Serious: No
  Sender: FDA-Public Use
  Company Number: US-ALLERGAN-1812691US

PATIENT
  Sex: Female

DRUGS (1)
  1. FEMRING [Suspect]
     Active Substance: ESTRADIOL ACETATE
     Indication: ATROPHIC VULVOVAGINITIS
     Dosage: UNK
     Route: 067

REACTIONS (3)
  - Palpitations [Recovered/Resolved]
  - Abdominal distension [Recovered/Resolved]
  - Abdominal pain [Recovered/Resolved]
